FAERS Safety Report 4331565-6 (Version None)
Quarter: 2004Q2

REPORT INFORMATION
  Report Type: 
  Country: None (occurrence: None)
  Receive Date: 20040405
  Receipt Date: 20020514
  Transmission Date: 20050107
  Serious: Yes (Hospitalization, Disabling, Other)
  Sender: FDA-Public Use
  Company Number: US-MERCK-0205USA01794

PATIENT
  Age: 48 Year
  Sex: Female
  Weight: 205 kg

DRUGS (16)
  1. VENTOLIN [Concomitant]
     Route: 065
  2. TENORMIN [Concomitant]
     Route: 065
     Dates: start: 19850901
  3. VASOTEC [Concomitant]
     Route: 048
     Dates: start: 19850901
  4. CENESTIN [Concomitant]
     Route: 065
  5. LODINE XL [Concomitant]
     Route: 065
  6. LASIX [Concomitant]
     Route: 065
     Dates: start: 19850801
  7. DITROPAN [Concomitant]
     Route: 065
  8. K-DUR 10 [Concomitant]
     Route: 065
  9. QUININE SULFATE [Concomitant]
     Route: 065
  10. VIOXX [Suspect]
     Indication: JOINT INJURY
     Route: 048
     Dates: start: 20000526, end: 20010630
  11. VIOXX [Suspect]
     Route: 048
     Dates: start: 20010701, end: 20011025
  12. VIOXX [Suspect]
     Route: 048
     Dates: start: 20011228
  13. VIOXX [Suspect]
     Indication: MENISCUS LESION
     Route: 048
     Dates: start: 20000526, end: 20010630
  14. VIOXX [Suspect]
     Route: 048
     Dates: start: 20010701, end: 20011025
  15. VIOXX [Suspect]
     Route: 048
     Dates: start: 20011228
  16. ULTRAM [Concomitant]
     Route: 065

REACTIONS (52)
  - ABDOMINAL PAIN [None]
  - ABDOMINAL PAIN UPPER [None]
  - ABSCESS LIMB [None]
  - ADNEXA UTERI MASS [None]
  - ANXIETY [None]
  - AZOTAEMIA [None]
  - BRONCHITIS [None]
  - CANDIDIASIS [None]
  - CARDIAC FAILURE CONGESTIVE [None]
  - CARDIAC FLUTTER [None]
  - CELLULITIS [None]
  - CERVICITIS [None]
  - CRYING [None]
  - CYSTITIS [None]
  - DYSPNOEA [None]
  - EPISTAXIS [None]
  - EYE DISORDER [None]
  - FALLOPIAN TUBE CYST [None]
  - FISTULA [None]
  - FLUID RETENTION [None]
  - HYPERCAPNIA [None]
  - HYPERTENSION [None]
  - HYPOVENTILATION [None]
  - INJURY [None]
  - IRRITABLE BOWEL SYNDROME [None]
  - JOINT DISLOCATION [None]
  - JOINT EFFUSION [None]
  - JOINT INJURY [None]
  - LIMB DISCOMFORT [None]
  - LOWER EXTREMITY MASS [None]
  - MASS [None]
  - MENISCUS LESION [None]
  - MENORRHAGIA [None]
  - MOOD SWINGS [None]
  - NASAL DRYNESS [None]
  - NEUROPATHIC PAIN [None]
  - NOCTURIA [None]
  - NON-CARDIAC CHEST PAIN [None]
  - OEDEMA PERIPHERAL [None]
  - OVARIAN FIBROSIS [None]
  - PALPITATIONS [None]
  - PARAESTHESIA [None]
  - PEAU D'ORANGE [None]
  - PELVIC PAIN [None]
  - PICKWICKIAN SYNDROME [None]
  - PNEUMONIA [None]
  - PULMONARY OEDEMA [None]
  - RESPIRATORY FAILURE [None]
  - RETCHING [None]
  - SWEAT GLAND INFECTION [None]
  - URINARY TRACT INFECTION [None]
  - WEIGHT INCREASED [None]
